FAERS Safety Report 9683660 (Version 1)
Quarter: 2013Q4

REPORT INFORMATION
  Report Type: Spontaneous
  Country: JP (occurrence: JP)
  Receive Date: 20131112
  Receipt Date: 20131112
  Transmission Date: 20140711
  Serious: Yes (Other)
  Sender: FDA-Public Use
  Company Number: JP-PFIZER INC-2013316991

PATIENT
  Age: 12 Year
  Sex: Male
  Weight: 37.2 kg

DRUGS (4)
  1. GENOTROPIN TC [Suspect]
     Indication: DWARFISM
     Dosage: 1.8 MG, 1X/DAY
     Route: 058
     Dates: start: 20091110, end: 20131023
  2. GENOTROPIN TC [Suspect]
     Indication: SMALL FOR DATES BABY
  3. LEUPLIN [Suspect]
     Indication: PRECOCIOUS PUBERTY
     Dosage: 2630 UG, 1X/DAY
     Route: 058
     Dates: start: 20120813, end: 20130927
  4. LEUPLIN [Suspect]
     Indication: DWARFISM

REACTIONS (1)
  - Osteonecrosis [Not Recovered/Not Resolved]
